FAERS Safety Report 5727754-6 (Version None)
Quarter: 2008Q2

REPORT INFORMATION
  Report Type: 
  Country: None (occurrence: None)
  Receive Date: 20080505
  Receipt Date: 20080423
  Transmission Date: 20081010
  Serious: Yes (Other)
  Sender: FDA-Public Use
  Company Number: US-PFIZER INC-2008036809

PATIENT
  Sex: Female
  Weight: 59.9 kg

DRUGS (3)
  1. CHANTIX [Suspect]
     Indication: SMOKING CESSATION THERAPY
  2. LISINOPRIL AND HYDROCHLOROTHIAZIDE [Interacting]
  3. VITAMIN CAP [Concomitant]

REACTIONS (13)
  - ANXIETY [None]
  - AVERSION [None]
  - DEPRESSED MOOD [None]
  - DRUG INTERACTION [None]
  - DYSPHAGIA [None]
  - FLUSHING [None]
  - GASTRIC HAEMORRHAGE [None]
  - GINGIVAL BLEEDING [None]
  - HEART RATE ABNORMAL [None]
  - HOMICIDAL IDEATION [None]
  - MOOD SWINGS [None]
  - NAUSEA [None]
  - VOMITING [None]
